FAERS Safety Report 5464967-5 (Version None)
Quarter: 2007Q3

REPORT INFORMATION
  Report Type: 
  Country: None (occurrence: None)
  Receive Date: 20070921
  Receipt Date: 20070911
  Transmission Date: 20080115
  Serious: Yes (Other)
  Sender: FDA-Public Use
  Company Number: US-PFIZER INC-2007077172

PATIENT
  Sex: Female
  Weight: 113.9 kg

DRUGS (7)
  1. LYRICA [Suspect]
     Indication: HYPOAESTHESIA
     Dates: start: 20070101, end: 20070101
  2. LYRICA [Suspect]
     Indication: PARAESTHESIA
  3. PLAVIX [Concomitant]
  4. ASPIRIN [Concomitant]
  5. IBUPROFEN [Concomitant]
  6. LORTAB [Concomitant]
  7. SOMA [Concomitant]

REACTIONS (6)
  - BALANCE DISORDER [None]
  - CONVULSION [None]
  - DIABETES MELLITUS [None]
  - FEELING DRUNK [None]
  - GAIT DISTURBANCE [None]
  - STRABISMUS [None]
